FAERS Safety Report 8586475-5 (Version None)
Quarter: 2012Q3

REPORT INFORMATION
  Report Type: 
  Country: None (occurrence: None)
  Receive Date: 20120810
  Receipt Date: 20120622
  Transmission Date: 20120928
  Serious: Yes (Other)
  Sender: FDA-Public Use
  Company Number: JP-009507513-1208JPN004478

PATIENT

DRUGS (14)
  1. PEG-INTRON [Suspect]
     Dosage: 50MCG/KG/WEEK
     Route: 058
     Dates: start: 20120426
  2. TELAVIC [Suspect]
     Route: 048
     Dates: start: 20120621, end: 20120704
  3. REBETOL [Suspect]
     Route: 048
     Dates: end: 20120606
  4. REBETOL [Suspect]
     Route: 048
     Dates: start: 20120621
  5. TELAVIC [Suspect]
     Indication: HEPATITIS C
     Route: 048
     Dates: start: 20120412, end: 20120606
  6. PEG-INTRON [Suspect]
     Dosage: 40MCG/KG/WEEK
     Route: 058
     Dates: start: 20120419
  7. PEG-INTRON [Suspect]
     Indication: HEPATITIS C
     Dosage: 1.0MCG/KG/WEEK
     Route: 058
     Dates: end: 20120419
  8. LAC-B [Concomitant]
     Route: 048
     Dates: start: 20120426
  9. VITAMIN B12 [Concomitant]
     Dosage: 1500 (UNKNOWN) ONCE
     Route: 048
     Dates: start: 20120419
  10. MS HOT SHIPPU [Concomitant]
     Route: 061
     Dates: start: 20120502
  11. PEG-INTRON [Suspect]
     Dosage: 1.0MCG/KG/WEEK
     Route: 058
     Dates: end: 20120531
  12. PEG-INTRON [Suspect]
     Dosage: 1.0MCG/KG/WEEK
     Route: 058
     Dates: start: 20120621
  13. REBETOL [Suspect]
     Indication: HEPATITIS C
     Route: 048
  14. MYONAL [Concomitant]
     Route: 048
     Dates: start: 20120510

REACTIONS (1)
  - NEUTROPHIL COUNT DECREASED [None]
